FAERS Safety Report 24106370 (Version 1)
Quarter: 2024Q3

REPORT INFORMATION
  Report Type: Spontaneous
  Country: US (occurrence: US)
  Receive Date: 20240717
  Receipt Date: 20240717
  Transmission Date: 20241016
  Serious: No
  Sender: Phathom Pharmaceuticals
  Company Number: US-PHATHOM PHARMACEUTICALS INC.-2024PHT00420

PATIENT

DRUGS (1)
  1. VOQUEZNA [Suspect]
     Active Substance: VONOPRAZAN FUMARATE
     Dosage: UNK
     Route: 048

REACTIONS (9)
  - Feeling abnormal [Unknown]
  - Drug ineffective [Unknown]
  - Chest discomfort [Unknown]
  - Productive cough [Unknown]
  - Dry throat [Unknown]
  - Asthma [Unknown]
  - Dizziness [Unknown]
  - Asthenia [Unknown]
  - Anxiety [Unknown]
